FAERS Safety Report 10278914 (Version 1)
Quarter: 2014Q3

REPORT INFORMATION
  Report Type: Report from Study
  Country: US (occurrence: US)
  Receive Date: 20140706
  Receipt Date: 20140706
  Transmission Date: 20150326
  Serious: Yes (Hospitalization, Other)
  Sender: FDA-Public Use
  Company Number: US-009507513-1407USA001309

PATIENT
  Age: 69 Year
  Sex: Male

DRUGS (2)
  1. ABT-414 [Suspect]
     Active Substance: INVESTIGATIONAL PRODUCT
     Indication: GLIOBLASTOMA MULTIFORME
     Dosage: 251 MG, ONE IN 2 WEEKS
     Route: 042
  2. TEMODAR [Suspect]
     Active Substance: TEMOZOLOMIDE
     Indication: GLIOBLASTOMA MULTIFORME
     Dosage: 75 MG/M2, QD
     Route: 048

REACTIONS (1)
  - Central nervous system haemorrhage [Unknown]

NARRATIVE: CASE EVENT DATE: 20140604
